FAERS Safety Report 8115837-5 (Version None)
Quarter: 2012Q1

REPORT INFORMATION
  Report Type: 
  Country: None (occurrence: None)
  Receive Date: 20120206
  Receipt Date: 20120201
  Transmission Date: 20120608
  Serious: Yes (Hospitalization)
  Sender: FDA-Public Use
  Company Number: CA-B.I. PHARMACEUTICALS,INC./RIDGEFIELD-2012-CN-00159CN

PATIENT
  Age: 72 Year
  Sex: Female

DRUGS (2)
  1. PANTOPRAZOLE SODIUM [Concomitant]
  2. PRADAXA [Suspect]
     Dosage: 300 MG

REACTIONS (1)
  - EMBOLIC STROKE [None]
